FAERS Safety Report 10633796 (Version 2)
Quarter: 2014Q4

REPORT INFORMATION
  Report Type: Other
  Country: US (occurrence: US)
  Receive Date: 20141205
  Receipt Date: 20141205
  Transmission Date: 20150529
  Serious: Yes (Hospitalization, Other)
  Sender: FDA-Public Use
  Company Number: US-GSKPPD-2014GSK005773

PATIENT
  Sex: Male

DRUGS (3)
  1. AVANDIA [Suspect]
     Active Substance: ROSIGLITAZONE MALEATE
     Indication: DIABETES MELLITUS
     Dosage: DATES OF AVANDIA USE COULD NOT BE CONFIRMED IN RECORDS REVIEWED.
     Route: 048
  2. METOPROLOL SUCCINATE. [Concomitant]
     Active Substance: METOPROLOL SUCCINATE
  3. CLOPIDOGREL [Concomitant]
     Active Substance: CLOPIDOGREL BISULFATE

REACTIONS (2)
  - Ventricular tachycardia [Recovered/Resolved]
  - Cardiac failure congestive [Unknown]

NARRATIVE: CASE EVENT DATE: 20050629
